FAERS Safety Report 20751077 (Version 1)
Quarter: 2022Q2

REPORT INFORMATION
  Report Type: Spontaneous
  Country: US (occurrence: None)
  Receive Date: 20220426
  Receipt Date: 20220426
  Transmission Date: 20220721
  Serious: No
  Sender: FDA-Public Use
  Company Number: None

PATIENT
  Age: 12 Week
  Sex: Male

DRUGS (2)
  1. OMEPRAZOLE [Suspect]
     Active Substance: OMEPRAZOLE
     Indication: Gastrooesophageal reflux disease
     Dosage: OTHER QUANTITY : 2.5 ML;?FREQUENCY : DAILY;?
     Route: 048
     Dates: start: 20220228, end: 20220405
  2. VITAMIN D DROPS [Concomitant]

REACTIONS (4)
  - Product dispensing error [None]
  - Wrong product administered [None]
  - Product packaging confusion [None]
  - Product name confusion [None]

NARRATIVE: CASE EVENT DATE: 20220405
